FAERS Safety Report 17125147 (Version 1)
Quarter: 2019Q4

REPORT INFORMATION
  Report Type: Spontaneous
  Country: US (occurrence: US)
  Receive Date: 20191206
  Receipt Date: 20191206
  Transmission Date: 20200122
  Serious: No
  Sender: FDA-Public Use
  Company Number: US-DRREDDYS-USA/USA/19/0116664

PATIENT
  Sex: Female

DRUGS (4)
  1. NICOTROL [Concomitant]
     Active Substance: NICOTINE
     Indication: TOBACCO WITHDRAWAL SYMPTOMS
     Dosage: INHALE UP TO 80 PUFFS OVER 20 MINUTES TO DEPLETE THE AVAILABLE NICOTINE AS NEEDED
     Route: 045
     Dates: start: 20191023
  2. NICOTROL [Concomitant]
     Active Substance: NICOTINE
     Indication: CHRONIC OBSTRUCTIVE PULMONARY DISEASE
     Dosage: 2 SPRAYS IN EACH NOSTRIL
     Route: 045
  3. NICOTINE. [Suspect]
     Active Substance: NICOTINE
     Indication: TOBACCO USER
     Route: 062
  4. CHANTIX [Concomitant]
     Active Substance: VARENICLINE TARTRATE
     Indication: NICOTINE DEPENDENCE
     Route: 048
     Dates: start: 20191023

REACTIONS (2)
  - Drug ineffective [Unknown]
  - Product quality issue [Unknown]
